FAERS Safety Report 20113143 (Version 2)
Quarter: 2022Q1

REPORT INFORMATION
  Report Type: Spontaneous
  Country: FR (occurrence: FR)
  Receive Date: 20211125
  Receipt Date: 20220211
  Transmission Date: 20220423
  Serious: Yes (Hospitalization, Other)
  Sender: FDA-Public Use
  Company Number: FR-EMA-DD-20211110-banala_s-120039

PATIENT
  Age: 47 Year
  Sex: Female

DRUGS (4)
  1. KEPPRA [Suspect]
     Active Substance: LEVETIRACETAM
     Indication: Product used for unknown indication
     Dosage: UNK
  2. CHLORMADINONE ACETATE [Suspect]
     Active Substance: CHLORMADINONE ACETATE
     Indication: Product used for unknown indication
     Dosage: UNK
     Dates: start: 20180104
  3. CHLORMADINONE ACETATE [Suspect]
     Active Substance: CHLORMADINONE ACETATE
     Indication: Uterine leiomyoma
     Dosage: 10 MG
     Dates: start: 20091113, end: 201409
  4. CHLORMADINONE ACETATE [Suspect]
     Active Substance: CHLORMADINONE ACETATE
     Indication: Contraception
     Dosage: 5 MG
     Dates: start: 20140912, end: 20191123

REACTIONS (18)
  - Migraine [Unknown]
  - Hyposmia [Unknown]
  - Memory impairment [Not Recovered/Not Resolved]
  - Paraesthesia [Unknown]
  - Fatigue [Unknown]
  - Disturbance in attention [Unknown]
  - Phlebitis [Recovered/Resolved]
  - Hypertension [Unknown]
  - Diplopia [Unknown]
  - Headache [Recovering/Resolving]
  - Cognitive disorder [Not Recovered/Not Resolved]
  - Meningioma [Recovered/Resolved]
  - Muscle disorder [Unknown]
  - Dilatation ventricular [Unknown]
  - Deafness [Unknown]
  - Anosmia [Unknown]
  - Photophobia [Unknown]
  - Unevaluable event [Unknown]

NARRATIVE: CASE EVENT DATE: 20120507
